FAERS Safety Report 9174265 (Version 3)
Quarter: 2013Q2

REPORT INFORMATION
  Report Type: Spontaneous
  Country: US (occurrence: US)
  Receive Date: 20130320
  Receipt Date: 20130419
  Transmission Date: 20140414
  Serious: Yes (Hospitalization, Other)
  Sender: FDA-Public Use
  Company Number: US-JNJFOC-20130304328

PATIENT
  Age: 31 Year
  Sex: Female

DRUGS (13)
  1. REMICADE [Suspect]
     Indication: CROHN^S DISEASE
     Route: 042
  2. REMICADE [Suspect]
     Indication: CROHN^S DISEASE
     Route: 042
     Dates: start: 201208
  3. HUMIRA [Suspect]
     Indication: CROHN^S DISEASE
     Route: 050
  4. HUMIRA [Suspect]
     Indication: CROHN^S DISEASE
     Route: 050
     Dates: start: 201209
  5. ZANTAC [Suspect]
     Indication: PREMEDICATION
     Route: 065
  6. ZYRTEC [Suspect]
     Route: 065
  7. ZYRTEC [Suspect]
     Indication: PREMEDICATION
     Route: 065
  8. SOLUMEDROL (METHYLPREDNISOLONE SODIUM SUCCINATE) [Suspect]
     Indication: PREMEDICATION
     Route: 065
  9. TYLENOL [Suspect]
     Route: 065
  10. TYLENOL [Suspect]
     Indication: PREMEDICATION
     Route: 065
  11. BENADRYL [Suspect]
     Indication: PREMEDICATION
     Route: 065
  12. BENTYL [Concomitant]
     Route: 065
  13. MOTRIN [Concomitant]
     Route: 065

REACTIONS (10)
  - Chest pain [Recovered/Resolved]
  - Dyspnoea [Recovered/Resolved]
  - Arthritis [Recovered/Resolved]
  - Hearing impaired [Unknown]
  - Infusion related reaction [Recovered/Resolved]
  - Influenza like illness [Recovered/Resolved]
  - Nausea [Unknown]
  - Asthenia [Unknown]
  - Insomnia [Unknown]
  - Dizziness [Unknown]
